FAERS Safety Report 8354465-3 (Version None)
Quarter: 2012Q2

REPORT INFORMATION
  Report Type: 
  Country: None (occurrence: None)
  Receive Date: 20120511
  Receipt Date: 20120502
  Transmission Date: 20120825
  Serious: Yes (Life-Threatening)
  Sender: FDA-Public Use
  Company Number: CH-JNJFOC-20120504339

PATIENT
  Age: 58 Year
  Sex: Male

DRUGS (4)
  1. REMICADE [Suspect]
     Indication: RHEUMATOID ARTHRITIS
     Route: 042
     Dates: start: 20110516, end: 20111101
  2. PLAQUENIL [Concomitant]
     Indication: RHEUMATOID ARTHRITIS
     Route: 048
     Dates: start: 20110101, end: 20110501
  3. METHOTREXATE [Concomitant]
     Route: 058
     Dates: start: 20111201
  4. METHOTREXATE [Concomitant]
     Route: 058
     Dates: start: 20111101, end: 20111201

REACTIONS (2)
  - RENAL CANCER [None]
  - PNEUMONIA [None]
